FAERS Safety Report 5378335-8 (Version None)
Quarter: 2007Q2

REPORT INFORMATION
  Report Type: 
  Country: None (occurrence: None)
  Receive Date: 20070530
  Receipt Date: 20070223
  Transmission Date: 20071010
  Serious: No
  Sender: FDA-Public Use
  Company Number: 2007PV030661

PATIENT
  Age: 51 Year
  Sex: Female
  Weight: 119.7496 kg

DRUGS (3)
  1. BYETTA [Suspect]
     Indication: DIABETES MELLITUS NON-INSULIN-DEPENDENT
     Dosage: 10 MCG; BID; SC; 10 MCG; BID; SC; 5 MCG; BID; SC
     Route: 058
     Dates: start: 20061001, end: 20061101
  2. BYETTA [Suspect]
     Indication: DIABETES MELLITUS NON-INSULIN-DEPENDENT
     Dosage: 10 MCG; BID; SC; 10 MCG; BID; SC; 5 MCG; BID; SC
     Route: 058
     Dates: start: 20061101, end: 20070201
  3. BYETTA [Suspect]
     Indication: DIABETES MELLITUS NON-INSULIN-DEPENDENT
     Dosage: 10 MCG; BID; SC; 10 MCG; BID; SC; 5 MCG; BID; SC
     Route: 058
     Dates: start: 20070201, end: 20070222

REACTIONS (2)
  - POSTMENOPAUSAL HAEMORRHAGE [None]
  - WEIGHT DECREASED [None]
